FAERS Safety Report 6941450-9 (Version None)
Quarter: 2010Q3

REPORT INFORMATION
  Report Type: 
  Country: None (occurrence: None)
  Receive Date: 20100825
  Receipt Date: 20100811
  Transmission Date: 20110219
  Serious: Yes (Other)
  Sender: FDA-Public Use
  Company Number: JP-PFIZER INC-2010091545

PATIENT
  Age: 69 Year
  Sex: Female
  Weight: 45 kg

DRUGS (8)
  1. LYRICA [Suspect]
     Indication: POST HERPETIC NEURALGIA
     Dosage: 75 MG, 2X/DAY
     Route: 048
     Dates: start: 20100716, end: 20100720
  2. HOCHUUEKKITOU [Interacting]
     Indication: HYPOAESTHESIA
     Dosage: 2.5 G, 3X/DAY
     Route: 048
     Dates: start: 20100714, end: 20100716
  3. METHYCOBAL [Interacting]
     Indication: PAIN
     Dosage: 0.5 MG, 2X/DAY
     Route: 048
     Dates: start: 20100706, end: 20100719
  4. LOXONIN [Concomitant]
     Indication: PAIN
     Dosage: 60 MG, 2X/DAY
     Route: 048
     Dates: start: 20100706, end: 20100706
  5. LOXONIN [Concomitant]
     Dosage: 60 MG, 3X/DAY
     Route: 048
     Dates: start: 20100707, end: 20100709
  6. MUCOSTA [Concomitant]
     Dosage: 100 MG, 3X/DAY
     Route: 048
     Dates: start: 20100707, end: 20100709
  7. CELECOXIB [Concomitant]
     Indication: PAIN
     Dosage: 200 MG, 2X/DAY
     Route: 048
     Dates: start: 20100709, end: 20100719
  8. ACYCLOVIR SODIUM [Concomitant]
     Indication: POST HERPETIC NEURALGIA
     Dosage: 3200 MG/DAY
     Dates: start: 20100706, end: 20100711

REACTIONS (5)
  - DRUG INTERACTION [None]
  - ERYTHEMA [None]
  - FACE OEDEMA [None]
  - GASTROINTESTINAL DISORDER [None]
  - OEDEMA PERIPHERAL [None]
